FAERS Safety Report 5238831-0 (Version None)
Quarter: 2007Q1

REPORT INFORMATION
  Report Type: 
  Country: None (occurrence: None)
  Receive Date: 20070215
  Receipt Date: 20070207
  Transmission Date: 20070707
  Serious: Yes (Disabling, Other)
  Sender: FDA-Public Use
  Company Number: US-PFIZER INC-2007003137

PATIENT
  Age: 62 Year
  Sex: Male

DRUGS (5)
  1. LYRICA [Suspect]
     Indication: SPINAL COLUMN STENOSIS
     Dates: start: 20061031, end: 20061205
  2. LYRICA [Suspect]
     Indication: RADICULAR PAIN
  3. LYRICA [Suspect]
     Indication: RADICULOPATHY
  4. LIPITOR [Concomitant]
  5. ASPIRIN 10GR TIMED DISINTEGRATION TAB [Concomitant]

REACTIONS (2)
  - BLINDNESS UNILATERAL [None]
  - OPTIC ISCHAEMIC NEUROPATHY [None]
